FAERS Safety Report 5017002-7 (Version None)
Quarter: 2006Q2

REPORT INFORMATION
  Report Type: 
  Country: None (occurrence: None)
  Receive Date: 20060525
  Receipt Date: 20060515
  Transmission Date: 20061013
  Serious: Yes (Hospitalization)
  Sender: FDA-Public Use
  Company Number: 2006-142651-NL

PATIENT
  Age: 28 Year
  Sex: Female

DRUGS (2)
  1. CHORIONIC GONADOTROPIN [Suspect]
     Indication: OVARIAN DISORDER
     Dosage: 5000 IU; {1 MONTH
     Dates: start: 20060101, end: 20060101
  2. MENOTROPINS [Concomitant]

REACTIONS (4)
  - DYSPNOEA [None]
  - FALL [None]
  - LOSS OF CONSCIOUSNESS [None]
  - NAUSEA [None]
